FAERS Safety Report 7276082-9 (Version None)
Quarter: 2011Q1

REPORT INFORMATION
  Report Type: 
  Country: None (occurrence: None)
  Receive Date: 20110204
  Receipt Date: 20110125
  Transmission Date: 20110831
  Serious: Yes (Disabling, Other)
  Sender: FDA-Public Use
  Company Number: DE-NAPPMUNDI-DEU-2011-0006967

PATIENT
  Age: 39 Year
  Sex: Female

DRUGS (2)
  1. OXYCODONE HYDROCHLORIDE [Suspect]
     Indication: PAIN
  2. SEVREDOL [Suspect]
     Indication: PAIN

REACTIONS (2)
  - TOOTH LOSS [None]
  - TOOTH INFECTION [None]
